FAERS Safety Report 15804803 (Version 1)
Quarter: 2019Q1

REPORT INFORMATION
  Report Type: Spontaneous
  Country: US (occurrence: US)
  Receive Date: 20190109
  Receipt Date: 20190109
  Transmission Date: 20190417
  Serious: No
  Sender: FDA-Public Use
  Company Number: US-JNJFOC-20181230769

PATIENT
  Sex: Male

DRUGS (4)
  1. TYLENOL EXTRA STRENGTH [Suspect]
     Active Substance: ACETAMINOPHEN
     Indication: ASTHENIA
     Dosage: 1 GELCAP ONCE IN THE EVENING
     Route: 048
     Dates: start: 20181220
  2. TYLENOL EXTRA STRENGTH [Suspect]
     Active Substance: ACETAMINOPHEN
     Indication: ARTHRALGIA
     Dosage: 1 GELCAP ONCE IN THE EVENING
     Route: 048
     Dates: start: 20181220
  3. TYLENOL EXTRA STRENGTH [Suspect]
     Active Substance: ACETAMINOPHEN
     Indication: OROPHARYNGEAL PAIN
     Dosage: 1 GELCAP ONCE IN THE EVENING
     Route: 048
     Dates: start: 20181220
  4. TYLENOL EXTRA STRENGTH [Suspect]
     Active Substance: ACETAMINOPHEN
     Indication: NASOPHARYNGITIS
     Dosage: 1 GELCAP ONCE IN THE EVENING
     Route: 048
     Dates: start: 20181220

REACTIONS (1)
  - Product use in unapproved indication [Unknown]
